FAERS Safety Report 9319569 (Version 1)
Quarter: 2013Q2

REPORT INFORMATION
  Report Type: Spontaneous
  Country: US (occurrence: US)
  Receive Date: 20130530
  Receipt Date: 20130530
  Transmission Date: 20140414
  Serious: Yes (Hospitalization)
  Sender: FDA-Public Use
  Company Number: US-GLAXOSMITHKLINE-A1007391A

PATIENT
  Age: 57 Year
  Sex: Male

DRUGS (1)
  1. FLOLAN [Suspect]
     Indication: PULMONARY ARTERIAL HYPERTENSION
     Dosage: 22NGKM CONTINUOUS
     Route: 042
     Dates: start: 20010119

REACTIONS (5)
  - Cellulitis [Unknown]
  - Fluid retention [Unknown]
  - Weight increased [Unknown]
  - Fall [Unknown]
  - Localised infection [Unknown]
